FAERS Safety Report 7770567-4 (Version None)
Quarter: 2011Q3

REPORT INFORMATION
  Report Type: 
  Country: None (occurrence: None)
  Receive Date: 20110922
  Receipt Date: 20110912
  Transmission Date: 20111222
  Serious: Yes (Death)
  Sender: FDA-Public Use
  Company Number: PHHY2011DE69394

PATIENT
  Sex: Female

DRUGS (1)
  1. GLEEVEC [Suspect]
     Indication: GASTROINTESTINAL STROMAL TUMOUR
     Dosage: 400 MG, UNK
     Route: 048
     Dates: start: 20101007

REACTIONS (5)
  - THROMBOCYTOPENIA [None]
  - GASTROINTESTINAL HAEMORRHAGE [None]
  - POLYCYTHAEMIA VERA [None]
  - OEDEMA PERIPHERAL [None]
  - ANAEMIA [None]
